FAERS Safety Report 11545630 (Version 2)
Quarter: 2015Q4

REPORT INFORMATION
  Report Type: Spontaneous
  Country: BR (occurrence: BR)
  Receive Date: 20150924
  Receipt Date: 20151124
  Transmission Date: 20160304
  Serious: Yes (Disabling, Other)
  Sender: FDA-Public Use
  Company Number: BR-PFIZER INC-2015317762

PATIENT
  Age: 34 Year
  Sex: Female
  Weight: 81 kg

DRUGS (7)
  1. ATENOLOL. [Suspect]
     Active Substance: ATENOLOL
     Indication: BLOOD PRESSURE ABNORMAL
     Dosage: 25 MG, 2X/DAY
     Route: 048
     Dates: start: 2009
  2. FORXIGA [Suspect]
     Active Substance: DAPAGLIFLOZIN
     Indication: TYPE 2 DIABETES MELLITUS
     Dosage: 10 MG, 1X/DAY
     Route: 048
     Dates: start: 201508
  3. PREDNISONE. [Concomitant]
     Active Substance: PREDNISONE
     Indication: IMMUNOSUPPRESSANT DRUG THERAPY
     Dosage: 2.5 MG, 1X/DAY
     Route: 048
     Dates: start: 2008
  4. PROGRESSE [Concomitant]
     Indication: IMMUNOSUPPRESSANT DRUG THERAPY
     Dosage: 1 MG, 2X/DAY
     Route: 048
     Dates: start: 2008
  5. METFORMIN HCL [Suspect]
     Active Substance: METFORMIN HYDROCHLORIDE
     Indication: TYPE 2 DIABETES MELLITUS
     Dosage: 1 G, 1X/DAY
     Route: 048
     Dates: start: 2008
  6. AZATHIOPRINE. [Concomitant]
     Active Substance: AZATHIOPRINE
     Indication: IMMUNOSUPPRESSANT DRUG THERAPY
     Dosage: 50 MG, 1X/DAY
     Route: 048
     Dates: start: 2008
  7. INTERFERON [Concomitant]
     Active Substance: INTERFERON
     Indication: HEPATITIS C
     Dosage: UNK
     Dates: start: 2013

REACTIONS (6)
  - Hepatitis C [Recovering/Resolving]
  - Blood uric acid increased [Unknown]
  - Vaginal infection [Recovered/Resolved]
  - Hyperglycaemia [Recovered/Resolved]
  - Gait disturbance [Unknown]
  - Pain in extremity [Recovered/Resolved]

NARRATIVE: CASE EVENT DATE: 2014
